FAERS Safety Report 7948973-4 (Version None)
Quarter: 2011Q4

REPORT INFORMATION
  Report Type: 
  Country: None (occurrence: None)
  Receive Date: 20111130
  Receipt Date: 20111123
  Transmission Date: 20120403
  Serious: Yes (Hospitalization, Congenital Anomaly, Other)
  Sender: FDA-Public Use
  Company Number: US-PFIZER INC-2011104730

PATIENT
  Sex: Female
  Weight: 3.7 kg

DRUGS (2)
  1. ZOLOFT [Suspect]
     Dosage: UNK
     Route: 064
  2. MULTI-VITAMINS [Concomitant]
     Dosage: ONE DAILY
     Route: 064

REACTIONS (22)
  - PATENT DUCTUS ARTERIOSUS [None]
  - EAR INFECTION [None]
  - ATRIAL SEPTAL DEFECT [None]
  - SEPSIS NEONATAL [None]
  - PNEUMONIA [None]
  - SINUS TACHYCARDIA [None]
  - AGITATION [None]
  - PULMONARY HYPERTENSION [None]
  - C-REACTIVE PROTEIN INCREASED [None]
  - VIRAL PHARYNGITIS [None]
  - HYPERSENSITIVITY [None]
  - FOETAL EXPOSURE DURING PREGNANCY [None]
  - NEONATAL RESPIRATORY DISTRESS SYNDROME [None]
  - TACHYPNOEA [None]
  - RESPIRATORY ACIDOSIS [None]
  - METABOLIC ACIDOSIS [None]
  - CONJUNCTIVITIS INFECTIVE [None]
  - PETECHIAE [None]
  - IRRITABILITY [None]
  - PYREXIA [None]
  - HYPERBILIRUBINAEMIA NEONATAL [None]
  - LIP DRY [None]
